FAERS Safety Report 21657952 (Version 2)
Quarter: 2022Q4

REPORT INFORMATION
  Report Type: Spontaneous
  Country: CN (occurrence: CN)
  Receive Date: 20221129
  Receipt Date: 20221226
  Transmission Date: 20230113
  Serious: Yes (Hospitalization, Other)
  Sender: FDA-Public Use
  Company Number: None

PATIENT
  Age: 18 Year
  Sex: Male
  Weight: 71.5 kg

DRUGS (5)
  1. CYCLOPHOSPHAMIDE [Suspect]
     Active Substance: CYCLOPHOSPHAMIDE
     Indication: Ewing^s sarcoma
     Dosage: 2000 MG, QD
     Route: 041
     Dates: start: 20220603, end: 20220603
  2. MESNA [Suspect]
     Active Substance: MESNA
     Indication: Ewing^s sarcoma
     Dosage: 1.2 G, QD
     Route: 042
     Dates: start: 20220603, end: 20220603
  3. DOXORUBICIN HYDROCHLORIDE [Suspect]
     Active Substance: DOXORUBICIN HYDROCHLORIDE
     Indication: Ewing^s sarcoma
     Dosage: 60 MG , QD
     Route: 041
     Dates: start: 20220603, end: 20220603
  4. DOXORUBICIN HYDROCHLORIDE [Suspect]
     Active Substance: DOXORUBICIN HYDROCHLORIDE
     Dosage: 70 MG, QD
     Route: 041
     Dates: start: 20220605, end: 20220605
  5. VINCRISTINE SULFATE [Suspect]
     Active Substance: VINCRISTINE SULFATE
     Indication: Ewing^s sarcoma
     Dosage: 2 MG, QD
     Route: 042
     Dates: start: 20220603, end: 20220603

REACTIONS (1)
  - Myelosuppression [Recovering/Resolving]

NARRATIVE: CASE EVENT DATE: 20220614
